FAERS Safety Report 5034900-9 (Version None)
Quarter: 2006Q2

REPORT INFORMATION
  Report Type: 
  Country: None (occurrence: None)
  Receive Date: 20060517
  Receipt Date: 20060324
  Transmission Date: 20061013
  Serious: Yes (Other)
  Sender: FDA-Public Use
  Company Number: PHEH2006US03056

PATIENT
  Age: 67 Year
  Sex: Female

DRUGS (4)
  1. GLEEVEC [Suspect]
     Indication: GASTROINTESTINAL STROMAL TUMOUR
     Dosage: 400 MG, QOD, ORAL
     Route: 048
  2. SYNTHROID [Concomitant]
  3. MULTIPLE VITAMINS (ASCORBIC ACID, ERGOCALCIFEROL, FOLIC ACID, RETINOL, [Concomitant]
  4. AMBIEN [Concomitant]

REACTIONS (5)
  - ASPIRATION PLEURAL CAVITY [None]
  - COUGH [None]
  - DYSPNOEA [None]
  - JOINT SWELLING [None]
  - PLEURAL EFFUSION [None]
